FAERS Safety Report 5330380-4 (Version None)
Quarter: 2007Q2

REPORT INFORMATION
  Report Type: 
  Country: None (occurrence: None)
  Receive Date: 20070521
  Receipt Date: 20070516
  Transmission Date: 20071010
  Serious: Yes (Hospitalization)
  Sender: FDA-Public Use
  Company Number: US-BOEHRINGER INGELHEIM PHARMACEUTICALS, INC.-2007-BP-04409BP

PATIENT
  Sex: Male

DRUGS (1)
  1. FLOMAX [Suspect]
     Indication: BENIGN PROSTATIC HYPERPLASIA
     Route: 048
     Dates: start: 19980101

REACTIONS (5)
  - FALL [None]
  - NOCTURIA [None]
  - OSTEOARTHRITIS [None]
  - RHINORRHOEA [None]
  - VERTEBRAL INJURY [None]
